FAERS Safety Report 5503780-7 (Version None)
Quarter: 2007Q4

REPORT INFORMATION
  Report Type: 
  Country: None (occurrence: None)
  Receive Date: 20071101
  Receipt Date: 20070711
  Transmission Date: 20080405
  Serious: Yes (Hospitalization)
  Sender: FDA-Public Use
  Company Number: DK-BRISTOL-MYERS SQUIBB COMPANY-13964002

PATIENT
  Age: 63 Year
  Sex: Female

DRUGS (5)
  1. APROVEL TABS 150 MG [Suspect]
     Indication: HYPERTENSION
     Dosage: 1 DOSAGE FORM =1/2 TABLET.DOSE REDUCED FROM 150MG/DAILY TO 75MG/DAILY.
     Route: 048
     Dates: start: 20070601
  2. SELO-ZOK TABS [Concomitant]
     Indication: HYPERTENSION
     Route: 048
  3. CENTYL [Concomitant]
     Indication: HYPERTENSION
     Dosage: TABLET
     Route: 048
  4. NEXIUM [Concomitant]
     Indication: GASTRIC ULCER
     Dosage: TABLET
     Route: 048
  5. LEXOTAN [Concomitant]
     Indication: ANXIETY
     Dosage: TREATMENT STARTED 16 YEARS AGO
     Route: 048

REACTIONS (4)
  - DIZZINESS [None]
  - DYSPNOEA [None]
  - HYPERHIDROSIS [None]
  - PALPITATIONS [None]
